FAERS Safety Report 14668837 (Version 1)
Quarter: 2018Q1

REPORT INFORMATION
  Report Type: Spontaneous
  Country: US (occurrence: US)
  Receive Date: 20180321
  Receipt Date: 20180321
  Transmission Date: 20180509
  Serious: Yes (Hospitalization)
  Sender: FDA-Public Use
  Company Number: None

PATIENT
  Age: 36 Year
  Sex: Male
  Weight: 111 kg

DRUGS (1)
  1. LUMASON [Suspect]
     Active Substance: SULFUR HEXAFLUORIDE
     Indication: ECHOCARDIOGRAM
     Dosage: ?          OTHER FREQUENCY:ONCE;?
     Route: 040
     Dates: start: 20180320, end: 20180320

REACTIONS (13)
  - Dysgeusia [None]
  - Depressed level of consciousness [None]
  - Ventricular tachycardia [None]
  - Agonal rhythm [None]
  - Dyspnoea [None]
  - Pruritus [None]
  - Heart rate decreased [None]
  - Contrast media reaction [None]
  - Hyperhidrosis [None]
  - Cardio-respiratory arrest [None]
  - Blood pressure immeasurable [None]
  - Unresponsive to stimuli [None]
  - Ventricular fibrillation [None]
